FAERS Safety Report 10064566 (Version 1)
Quarter: 2014Q2

REPORT INFORMATION
  Report Type: Spontaneous
  Country: JP (occurrence: JP)
  Receive Date: 20140408
  Receipt Date: 20140408
  Transmission Date: 20141212
  Serious: Yes (Hospitalization)
  Sender: FDA-Public Use
  Company Number: JP-MYLANLABS-2014S1007443

PATIENT
  Age: 60 Year
  Sex: Female

DRUGS (7)
  1. PACLITAXEL [Suspect]
     Indication: BREAST CANCER
     Dosage: 80 MG/M2 (12 COURSES)
     Route: 065
  2. PACLITAXEL [Suspect]
     Indication: BREAST CANCER
     Route: 065
  3. EPIRUBICIN [Concomitant]
     Indication: BREAST CANCER
     Dosage: 75 MG/M2 (4 COURSES)
     Route: 065
  4. CYCLOPHOSPHAMIDE [Concomitant]
     Indication: BREAST CANCER
     Dosage: 600 MG/M2 (4 COURSES)
     Route: 065
  5. ANASTROZOLE [Concomitant]
     Route: 048
  6. TAMOXIFEN [Concomitant]
     Indication: BREAST CANCER
     Route: 065
  7. ZOLEDRONIC ACID [Concomitant]
     Indication: BREAST CANCER
     Route: 065

REACTIONS (1)
  - Peripheral nerve palsy [Recovering/Resolving]
